FAERS Safety Report 9557400 (Version 1)
Quarter: 2013Q3

REPORT INFORMATION
  Report Type: Spontaneous
  Country: US (occurrence: None)
  Receive Date: 20130726
  Receipt Date: 20130726
  Transmission Date: 20140515
  Serious: Yes (Hospitalization)
  Sender: FDA-Public Use
  Company Number: UTC-022865

PATIENT
  Age: 48 Year
  Sex: Female
  Weight: 104.5 kg

DRUGS (4)
  1. REMODULIN [Suspect]
     Indication: COR PULMONALE CHRONIC
     Dosage: 48.96 UG/KG (0.034 UG/KG, 1 IN 1 MIN)
     Route: 041
     Dates: start: 20090923, end: 20120910
  2. REMODULIN [Suspect]
     Indication: PULMONARY HYPERTENSION
     Dosage: 48.96 UG/KG (0.034 UG/KG, 1 IN 1 MIN)
     Route: 041
     Dates: start: 20090923, end: 20120910
  3. ADCIRCA (TADALAFIL) [Concomitant]
  4. TRACLEER (BOSENTAN) [Concomitant]

REACTIONS (1)
  - Device related infection [None]
